FAERS Safety Report 18544656 (Version 4)
Quarter: 2022Q3

REPORT INFORMATION
  Report Type: Spontaneous
  Country: US (occurrence: US)
  Receive Date: 20201125
  Receipt Date: 20220705
  Transmission Date: 20221027
  Serious: No
  Sender: FDA-Public Use
  Company Number: US-PFIZER INC-2020463578

PATIENT
  Age: 65 Year
  Sex: Female

DRUGS (3)
  1. RETACRIT [Suspect]
     Active Substance: EPOETIN ALFA-EPBX
     Indication: Anaemia
     Dosage: 40000 IU, CYCLIC (EVERY DAY FOR 4WKS X 24 CYCLES)
     Route: 058
  2. RETACRIT [Suspect]
     Active Substance: EPOETIN ALFA-EPBX
     Indication: Chronic kidney disease
     Dosage: 40000 IU, CYCLIC [GIVE 1 ML (40,000 UNITS) EVERY 4 WEEKS FOR 24 CYCLES]
     Route: 058
  3. RETACRIT [Suspect]
     Active Substance: EPOETIN ALFA-EPBX
     Indication: Iron deficiency anaemia

REACTIONS (1)
  - Off label use [Unknown]
